FAERS Safety Report 23607743 (Version 1)
Quarter: 2024Q1

REPORT INFORMATION
  Report Type: Spontaneous
  Country: HR (occurrence: HR)
  Receive Date: 20240307
  Receipt Date: 20240307
  Transmission Date: 20240410
  Serious: Yes (Other)
  Sender: FDA-Public Use
  Company Number: HR-INCYTE CORPORATION-2024IN000336

PATIENT

DRUGS (2)
  1. PEMAZYRE [Suspect]
     Active Substance: PEMIGATINIB
     Indication: Bladder cancer
     Dosage: 13.5 MILLIGRAM, QD (TAKEN INTERMITTENTLY FOR TWO WEEKS ONCE DAILY, THEN ONE WEEK PAUSE)
     Route: 065
     Dates: start: 202311
  2. PEMAZYRE [Suspect]
     Active Substance: PEMIGATINIB
     Dosage: 13.5 MILLIGRAM, QD CONTINUOUSLY
     Route: 065
     Dates: start: 202401, end: 202401

REACTIONS (3)
  - Bladder cancer [Unknown]
  - Disease progression [Unknown]
  - Off label use [Unknown]

NARRATIVE: CASE EVENT DATE: 20231101
